FAERS Safety Report 5797090-0 (Version None)
Quarter: 2008Q3

REPORT INFORMATION
  Report Type: 
  Country: None (occurrence: None)
  Receive Date: 20080701
  Receipt Date: 20080623
  Transmission Date: 20090109
  Serious: Yes (Hospitalization)
  Sender: FDA-Public Use
  Company Number: US-WATSON-2008-03791

PATIENT
  Age: 35 Year
  Sex: Male

DRUGS (3)
  1. LIDOCAINE HYDROCHLORIDE 1% WITH EPINEPHRINE (WATSON LABORATORIES) [Suspect]
     Indication: HYPERSENSITIVITY
     Dosage: 1 ML  X 2 DOSES
     Route: 042
     Dates: start: 20080101, end: 20080101
  2. LIDOCAINE HYDROCHLORIDE 1% WITH EPINEPHRINE (WATSON LABORATORIES) [Suspect]
     Dosage: 0.5ML X 2
     Route: 030
     Dates: start: 20080101, end: 20080101
  3. LIDOCAINE HYDROCHLORIDE 1% WITH EPINEPHRINE (WATSON LABORATORIES) [Suspect]
     Dosage: EPI PEN X 1
     Route: 058
     Dates: start: 20080101, end: 20080101

REACTIONS (2)
  - EJECTION FRACTION DECREASED [None]
  - VENTRICULAR HYPOKINESIA [None]
